FAERS Safety Report 4667184-1 (Version None)
Quarter: 2005Q2

REPORT INFORMATION
  Report Type: 
  Country: None (occurrence: None)
  Receive Date: 20050520
  Receipt Date: 20050513
  Transmission Date: 20051028
  Serious: Yes (Life-Threatening, Hospitalization)
  Sender: FDA-Public Use
  Company Number: US-SANOFI-SYNTHELABO-A03200501435

PATIENT
  Sex: Male
  Weight: 81.2 kg

DRUGS (4)
  1. ELOXATIN [Suspect]
     Indication: RECTAL CANCER RECURRENT
     Route: 042
     Dates: start: 20050404, end: 20050404
  2. XELODA [Suspect]
     Indication: RECTAL CANCER RECURRENT
     Dosage: 3500 MG TWICE A DAY AS 1750 MG/M2 DAYS 1-7 AND 14-21
     Route: 048
     Dates: start: 20050404
  3. COMPAZINE [Concomitant]
     Route: 065
  4. IMODIUM [Concomitant]
     Route: 065

REACTIONS (1)
  - ARTERIAL THROMBOSIS [None]
